FAERS Safety Report 5451104-6 (Version None)
Quarter: 2007Q3

REPORT INFORMATION
  Report Type: 
  Country: None (occurrence: None)
  Receive Date: 20070913
  Receipt Date: 20070910
  Transmission Date: 20080115
  Serious: Yes (Congenital Anomaly)
  Sender: FDA-Public Use
  Company Number: US-BRISTOL-MYERS SQUIBB COMPANY-13903653

PATIENT
  Sex: Female
  Weight: 1 kg

DRUGS (7)
  1. DIDANOSINE [Suspect]
     Indication: HIV INFECTION
     Route: 064
  2. AZT [Suspect]
     Indication: HIV INFECTION
     Route: 064
  3. NEVIRAPINE [Suspect]
     Indication: HIV INFECTION
     Route: 064
  4. LAMIVUDINE [Suspect]
     Indication: HIV INFECTION
     Route: 064
  5. ABACAVIR [Suspect]
     Indication: HIV INFECTION
     Route: 064
  6. NELFINAVIR [Suspect]
     Indication: HIV INFECTION
     Route: 064
  7. SAQUINAVIR [Suspect]
     Indication: HIV INFECTION
     Route: 064

REACTIONS (2)
  - JOINT DISLOCATION [None]
  - PREGNANCY [None]
